FAERS Safety Report 8549780-4 (Version None)
Quarter: 2012Q3

REPORT INFORMATION
  Report Type: 
  Country: None (occurrence: None)
  Receive Date: 20120730
  Receipt Date: 20120716
  Transmission Date: 20120928
  Serious: No
  Sender: FDA-Public Use
  Company Number: US-ASTRAZENECA-2012SE49451

PATIENT
  Age: 64 Year
  Sex: Female
  Weight: 69.9 kg

DRUGS (4)
  1. DIOVAN HCT [Concomitant]
  2. CRESTOR [Suspect]
     Indication: BLOOD PRESSURE ABNORMAL
     Route: 048
  3. METFORMIN HYDROCHLORIDE [Concomitant]
  4. NORVASC [Concomitant]
     Indication: HYPERTENSION

REACTIONS (3)
  - BURNING SENSATION [None]
  - MYALGIA [None]
  - MUSCULAR WEAKNESS [None]
